FAERS Safety Report 24404329 (Version 1)
Quarter: 2024Q4

REPORT INFORMATION
  Report Type: Spontaneous
  Country: US (occurrence: None)
  Receive Date: 20241004
  Receipt Date: 20241004
  Transmission Date: 20250115
  Serious: No
  Sender: Public
  Company Number: None

PATIENT
  Sex: Female

DRUGS (4)
  1. DEVICE [Suspect]
     Active Substance: DEVICE
  2. REMODULIN [Suspect]
     Active Substance: TREPROSTINIL
     Indication: Pulmonary arterial hypertension
     Dosage: OTHER STRENGTH : 18.817NG/KG/MIN;?OTHER FREQUENCY : CONTINUOUS;?
     Dates: start: 202104
  3. AMBRISENTAN [Concomitant]
     Active Substance: AMBRISENTAN
  4. TADALAFIL [Concomitant]
     Active Substance: TADALAFIL

REACTIONS (3)
  - Device malfunction [None]
  - Drug dose omission by device [None]
  - Illness [None]
